FAERS Safety Report 19735847 (Version 6)
Quarter: 2022Q3

REPORT INFORMATION
  Report Type: Report from Study
  Country: BR (occurrence: BR)
  Receive Date: 20210823
  Receipt Date: 20220627
  Transmission Date: 20221027
  Serious: Yes (Other)
  Sender: FDA-Public Use
  Company Number: NVSC2021BR183657

PATIENT
  Age: 28 Year
  Sex: Female
  Weight: 78 kg

DRUGS (13)
  1. KISQALI [Suspect]
     Active Substance: RIBOCICLIB
     Indication: Neoplasm malignant
     Dosage: 3 DF
     Route: 065
     Dates: start: 20210409
  2. KISQALI [Suspect]
     Active Substance: RIBOCICLIB
     Indication: Breast cancer metastatic
     Dosage: 2 DF
     Route: 065
  3. KISQALI [Suspect]
     Active Substance: RIBOCICLIB
     Dosage: 3 DF
     Route: 065
     Dates: start: 20210712
  4. KISQALI [Suspect]
     Active Substance: RIBOCICLIB
     Dosage: 2 DF
     Route: 065
     Dates: start: 20210730, end: 20210812
  5. KISQALI [Suspect]
     Active Substance: RIBOCICLIB
     Dosage: 3 DF
     Route: 065
     Dates: start: 20210813
  6. KISQALI [Suspect]
     Active Substance: RIBOCICLIB
     Dosage: 3 DF, QD
     Route: 048
  7. KISQALI [Suspect]
     Active Substance: RIBOCICLIB
     Dosage: 3 DF, QD
     Route: 048
  8. KISQALI [Suspect]
     Active Substance: RIBOCICLIB
     Dosage: 600 MG
     Route: 065
     Dates: start: 20210409
  9. KISQALI [Suspect]
     Active Substance: RIBOCICLIB
     Dosage: UNK
     Route: 065
  10. ZOMETA [Suspect]
     Active Substance: ZOLEDRONIC ACID
     Indication: Calcium deficiency
     Dosage: 1 DF, QMO
     Route: 042
  11. ANASTROZOLE [Concomitant]
     Active Substance: ANASTROZOLE
     Indication: Adjuvant therapy
     Dosage: UNK, QD (1 TABLET/1 MG)
     Route: 048
  12. VENLAFAXINE HYDROCHLORIDE [Concomitant]
     Active Substance: VENLAFAXINE HYDROCHLORIDE
     Indication: Anxiety
     Dosage: UNK, QD (1 TABLET/ 37.5 MG)
     Route: 048
  13. ZOLADEX [Concomitant]
     Active Substance: GOSERELIN ACETATE
     Indication: Breast cancer
     Dosage: 1 DF, QMO
     Route: 058

REACTIONS (7)
  - Neutrophil count decreased [Unknown]
  - Neutropenia [Unknown]
  - Immunodeficiency [Not Recovered/Not Resolved]
  - Neutrophil count decreased [Recovered/Resolved]
  - Stress [Not Recovered/Not Resolved]
  - Skin disorder [Not Recovered/Not Resolved]
  - Product use in unapproved indication [Unknown]

NARRATIVE: CASE EVENT DATE: 20210629
